FAERS Safety Report 18797852 (Version 1)
Quarter: 2021Q1

REPORT INFORMATION
  Report Type: Spontaneous
  Country: GB (occurrence: GB)
  Receive Date: 20210128
  Receipt Date: 20210128
  Transmission Date: 20210419
  Serious: Yes (Disabling, Other)
  Sender: FDA-Public Use
  Company Number: GB-ADVANZ PHARMA-202101000476

PATIENT

DRUGS (9)
  1. DERMOVATE [Suspect]
     Active Substance: CLOBETASOL
     Indication: HAND DERMATITIS
     Dosage: SPARING DOSAGE OFF AND ON AS PRESCRIBED DURING FLARES OVER THIS BROAD TIME PERIOD FOR HAND ECZEMA.
     Route: 061
     Dates: start: 2006, end: 2020
  2. BETAMETHASONE VALERATE. [Suspect]
     Active Substance: BETAMETHASONE VALERATE
     Indication: ECZEMA
     Dosage: SPARING DOSAGE OFF AND ON AS PRESCRIBED DURING FLARES FOR SEVERE ECZEMA.
     Route: 061
     Dates: start: 2014, end: 2014
  3. EUMOVATE [Suspect]
     Active Substance: CLOBETASONE BUTYRATE
     Indication: ECZEMA
     Dosage: SPARING DOSAGE OFF AND ON AS PRESCRIBED DURING FLARES OVER THIS BROAD TIME PERIOD FOR ECZEMA FLARE.
     Route: 061
     Dates: start: 2003, end: 2005
  4. CLOBETASOL [Suspect]
     Active Substance: CLOBETASOL
     Indication: HAND DERMATITIS
     Dosage: SPARING DOSAGE OFF AND ON TWICE DAILY EXACTLY AS PRESCRIBED PERIOD FOR HAND ECZEMA.
     Route: 061
     Dates: start: 2014, end: 2016
  5. HYDROCORTISONE. [Suspect]
     Active Substance: HYDROCORTISONE
     Indication: ECZEMA
     Dosage: SPARING DOSAGE OFF AND ON AS PRESCRIBED DURING FLARES OVER THIS BROAD TIME PERIOD FOR ECZEMA
     Route: 061
     Dates: start: 2000, end: 2020
  6. PREDNISOLONE. [Suspect]
     Active Substance: PREDNISOLONE
     Indication: ECZEMA
     Dosage: A NUMBER OF COURSE (I THINK ABOUT 4) WITH APPROPRIATE TAPERING (EXCEPT ON ONE OCCASION).
     Route: 048
     Dates: start: 2014, end: 2015
  7. CLOBETASONE [Suspect]
     Active Substance: CLOBETASONE
     Indication: ECZEMA
     Dosage: SPARING DOSAGE OFF AND ON AS PRESCRIBED DURING FLARES OVER THIS BROAD TIME PERIOD FOR FACE ECZEMA.
     Route: 061
     Dates: start: 2014, end: 2017
  8. FUCIBET [Suspect]
     Active Substance: BETAMETHASONE VALERATE\FUSIDIC ACID
     Indication: ECZEMA
     Dosage: UNK
     Route: 061
     Dates: start: 2000, end: 2006
  9. BETNOVATE [Suspect]
     Active Substance: BETAMETHASONE
     Indication: ECZEMA
     Dosage: SPARING DOSAGE OFF AND ON AS PRESCRIBED DURING FLARES OVER THIS BROAD TIME PERIOD FOR ECZEMA FLARES
     Route: 061
     Dates: start: 2003, end: 2005

REACTIONS (8)
  - Dry skin [Recovered/Resolved]
  - Erythema [Unknown]
  - Eye swelling [Unknown]
  - Skin exfoliation [Recovered/Resolved]
  - Swelling face [Unknown]
  - Steroid withdrawal syndrome [Not Recovered/Not Resolved]
  - Neuralgia [Unknown]
  - Temperature regulation disorder [Unknown]

NARRATIVE: CASE EVENT DATE: 2020
